FAERS Safety Report 18409862 (Version 2)
Quarter: 2021Q2

REPORT INFORMATION
  Report Type: Other
  Country: DE (occurrence: DE)
  Receive Date: 20201021
  Receipt Date: 20210426
  Transmission Date: 20210717
  Serious: No
  Sender: FDA-Public Use
  Company Number: DE-ROCHE-2568930

PATIENT
  Age: 55 Year
  Sex: Male
  Weight: 76 kg

DRUGS (14)
  1. VALSARTAN. [Concomitant]
     Active Substance: VALSARTAN
     Indication: HYPERTENSION
     Route: 048
     Dates: start: 201410
  2. OCRELIZUMAB. [Suspect]
     Active Substance: OCRELIZUMAB
     Route: 042
     Dates: start: 20190402
  3. FENISTIL [Concomitant]
     Active Substance: DIMETHINDENE
     Route: 048
     Dates: start: 20190402
  4. PARACETAMOL [Concomitant]
     Active Substance: ACETAMINOPHEN
     Indication: PREMEDICATION
     Route: 048
     Dates: start: 20190402
  5. URBASON [Concomitant]
     Active Substance: METHYLPREDNISOLONE
     Route: 042
     Dates: start: 20190311, end: 20190312
  6. URBASON [Concomitant]
     Active Substance: METHYLPREDNISOLONE
     Route: 042
     Dates: start: 20190306, end: 20190308
  7. SILDENAFIL. [Concomitant]
     Active Substance: SILDENAFIL
     Dosage: DEFINITION OF THE INTERVAL: AS REQUIRED
     Route: 048
     Dates: start: 201509
  8. DUODART [Concomitant]
     Active Substance: DUTASTERIDE\TAMSULOSIN
     Indication: BLADDER DISORDER
     Route: 048
  9. OCRELIZUMAB. [Suspect]
     Active Substance: OCRELIZUMAB
     Indication: RELAPSING MULTIPLE SCLEROSIS
     Route: 042
     Dates: start: 20180927, end: 20181011
  10. FENISTIL [Concomitant]
     Active Substance: DIMETHINDENE
     Indication: PREMEDICATION
     Route: 048
     Dates: start: 20180927, end: 20181011
  11. PARACETAMOL [Concomitant]
     Active Substance: ACETAMINOPHEN
     Indication: PREMEDICATION
     Route: 048
     Dates: start: 20180927, end: 20181011
  12. URBASON [Concomitant]
     Active Substance: METHYLPREDNISOLONE
     Indication: PREMEDICATION
     Route: 042
     Dates: start: 20190402
  13. URBASON [Concomitant]
     Active Substance: METHYLPREDNISOLONE
     Indication: MULTIPLE SCLEROSIS RELAPSE
     Route: 042
     Dates: start: 20180927, end: 20181011
  14. TOLPERISONE [Concomitant]
     Active Substance: TOLPERISONE
     Indication: MUSCLE SPASTICITY
     Route: 048
     Dates: start: 20131209

REACTIONS (2)
  - Nasopharyngitis [Recovered/Resolved]
  - Onychomycosis [Recovered/Resolved]

NARRATIVE: CASE EVENT DATE: 201907
